FAERS Safety Report 14341493 (Version 4)
Quarter: 2018Q1

REPORT INFORMATION
  Report Type: Spontaneous
  Country: CA (occurrence: CA)
  Receive Date: 20180102
  Receipt Date: 20180302
  Transmission Date: 20180509
  Serious: Yes (Other)
  Sender: FDA-Public Use
  Company Number: CA-ORION CORPORATION ORION PHARMA-TREX2017-4310

PATIENT
  Age: 62 Year
  Sex: Female
  Weight: 51 kg

DRUGS (5)
  1. PROLIA [Concomitant]
     Active Substance: DENOSUMAB
     Route: 065
  2. PREDNISONE. [Concomitant]
     Active Substance: PREDNISONE
     Dosage: TAPERED DOSE
     Route: 065
  3. CORTISONE [Concomitant]
     Active Substance: CORTISONE\HYDROCORTISONE
     Route: 065
  4. METHOTREXATE (TRADE NAME UNKNOWN) [Suspect]
     Active Substance: METHOTREXATE
     Indication: RHEUMATOID ARTHRITIS
     Route: 048
  5. PREDNISONE. [Concomitant]
     Active Substance: PREDNISONE
     Route: 065

REACTIONS (20)
  - Arthritis [Unknown]
  - Lymphadenopathy [Unknown]
  - Arthralgia [Unknown]
  - Back pain [Unknown]
  - Thyroid calcification [Unknown]
  - Loss of consciousness [Unknown]
  - Head injury [Unknown]
  - Nodule [Unknown]
  - Foot deformity [Unknown]
  - Dry eye [Unknown]
  - Vertebral lesion [Unknown]
  - Kidney infection [Unknown]
  - Drug ineffective [Unknown]
  - Pleural fibrosis [Unknown]
  - Granulomatous liver disease [Unknown]
  - Osteoarthritis [Unknown]
  - Influenza [Not Recovered/Not Resolved]
  - Gait disturbance [Unknown]
  - Herpes zoster [Unknown]
  - Nasal congestion [Not Recovered/Not Resolved]
